FAERS Safety Report 6215897-2 (Version None)
Quarter: 2009Q2

REPORT INFORMATION
  Report Type: 
  Country: None (occurrence: None)
  Receive Date: 20090522
  Receipt Date: 20090511
  Transmission Date: 20091009
  Serious: Yes (Hospitalization, Other)
  Sender: FDA-Public Use
  Company Number: 2009AP001925

PATIENT
  Age: 84 Year
  Sex: Female

DRUGS (7)
  1. RANITIDINE HYDROCHLORIDE [Suspect]
     Indication: DYSPEPSIA
     Dosage: 150 MG; PO
     Route: 048
  2. ASPIRIN [Concomitant]
  3. AMILORIDE HYDROCHLORIDE [Concomitant]
  4. FUROSEMIDE [Concomitant]
  5. GLUCOSAMINE (GLUCOSAMINE) [Concomitant]
  6. NIFEDIPINE [Concomitant]
  7. OMEPRAZOLE [Concomitant]

REACTIONS (1)
  - HALLUCINATIONS, MIXED [None]
